FAERS Safety Report 18944612 (Version 1)
Quarter: 2021Q1

REPORT INFORMATION
  Report Type: Spontaneous
  Country: US (occurrence: US)
  Receive Date: 20210226
  Receipt Date: 20210226
  Transmission Date: 20210420
  Serious: Yes (Hospitalization)
  Sender: FDA-Public Use
  Company Number: None

PATIENT
  Age: 71 Year
  Sex: Female
  Weight: 67.5 kg

DRUGS (4)
  1. METFORMIN [Concomitant]
     Active Substance: METFORMIN HYDROCHLORIDE
  2. ENALAPRIL [Concomitant]
     Active Substance: ENALAPRIL
  3. GLIPIZIDE. [Concomitant]
     Active Substance: GLIPIZIDE
  4. EYLEA [Suspect]
     Active Substance: AFLIBERCEPT
     Dates: start: 20210203, end: 20210203

REACTIONS (5)
  - Headache [None]
  - Injection related reaction [None]
  - Vomiting [None]
  - Vertigo [None]
  - Cerebrovascular accident [None]

NARRATIVE: CASE EVENT DATE: 20210217
